FAERS Safety Report 17655534 (Version 7)
Quarter: 2022Q2

REPORT INFORMATION
  Report Type: Spontaneous
  Country: US (occurrence: US)
  Receive Date: 20200410
  Receipt Date: 20220425
  Transmission Date: 20220721
  Serious: No
  Sender: FDA-Public Use
  Company Number: US-PFIZER INC-2018362392

PATIENT
  Age: 63 Year
  Sex: Male

DRUGS (2)
  1. LYRICA [Suspect]
     Active Substance: PREGABALIN
     Indication: Back pain
     Dosage: 75 MG, TWICE A DAY
  2. LYRICA [Suspect]
     Active Substance: PREGABALIN
     Indication: Limb injury
     Dosage: 75 MG, THREE TIMES A DAY
     Route: 048

REACTIONS (3)
  - Drug ineffective [Unknown]
  - Euphoric mood [Unknown]
  - Withdrawal syndrome [Unknown]
